FAERS Safety Report 20320208 (Version 1)
Quarter: 2022Q1

REPORT INFORMATION
  Report Type: Spontaneous
  Country: FR (occurrence: FR)
  Receive Date: 20220111
  Receipt Date: 20220111
  Transmission Date: 20220423
  Serious: Yes (Hospitalization)
  Sender: FDA-Public Use
  Company Number: FR-ALKEM LABORATORIES LIMITED-FR-ALKEM-2021-08457

PATIENT
  Age: 17 Year
  Sex: Male

DRUGS (2)
  1. PREGABALIN [Suspect]
     Active Substance: PREGABALIN
     Indication: Partial seizures
     Dosage: 1200 MILLIGRAM
     Route: 065
  2. PREGABALIN [Suspect]
     Active Substance: PREGABALIN
     Indication: Neuralgia

REACTIONS (4)
  - Dysaesthesia [Unknown]
  - Paraesthesia [Unknown]
  - Anxiety [Unknown]
  - Drug use disorder [Unknown]
